FAERS Safety Report 5729003-1 (Version None)
Quarter: 2008Q2

REPORT INFORMATION
  Report Type: 
  Country: None (occurrence: None)
  Receive Date: 20080506
  Receipt Date: 20080423
  Transmission Date: 20081010
  Serious: Yes (Life-Threatening, Other)
  Sender: FDA-Public Use
  Company Number: US-BAYER-200821227NA

PATIENT
  Age: 72 Year
  Sex: Female

DRUGS (1)
  1. ULTRAVIST 370 [Suspect]
     Indication: COMPUTERISED TOMOGRAM THORAX
     Dosage: TOTAL DAILY DOSE: 100 ML  UNIT DOSE: 500 ML
     Route: 042
     Dates: start: 20080423, end: 20080423

REACTIONS (4)
  - DEPRESSED LEVEL OF CONSCIOUSNESS [None]
  - DIZZINESS [None]
  - RASH [None]
  - URTICARIA [None]
